FAERS Safety Report 12581007 (Version 1)
Quarter: 2016Q3

REPORT INFORMATION
  Report Type: Spontaneous
  Country: DK (occurrence: DK)
  Receive Date: 20160721
  Receipt Date: 20160721
  Transmission Date: 20161109
  Serious: Yes (Death, Other)
  Sender: FDA-Public Use
  Company Number: DK-TEVA-675726ISR

PATIENT
  Age: 68 Year
  Sex: Male

DRUGS (3)
  1. BLEOMYCIN SULFATE [Suspect]
     Active Substance: BLEOMYCIN SULFATE
     Indication: TESTIS CANCER
     Route: 065
     Dates: start: 19841219
  2. ETOPOSIDE. [Suspect]
     Active Substance: ETOPOSIDE
     Indication: TESTIS CANCER
     Route: 065
     Dates: start: 19841219
  3. CISPLATIN. [Suspect]
     Active Substance: CISPLATIN
     Indication: TESTIS CANCER
     Route: 065
     Dates: start: 19841219

REACTIONS (1)
  - Pulmonary fibrosis [Fatal]
